FAERS Safety Report 23176949 (Version 1)
Quarter: 2023Q4

REPORT INFORMATION
  Report Type: Spontaneous
  Country: US (occurrence: None)
  Receive Date: 20231110
  Receipt Date: 20231110
  Transmission Date: 20240110
  Serious: Yes (Hospitalization)
  Sender: FDA-Public Use
  Company Number: None

PATIENT
  Sex: Female

DRUGS (1)
  1. ILARIS [Suspect]
     Active Substance: CANAKINUMAB
     Indication: Rheumatoid arthritis
     Dosage: ?INJECT 67.5 MG UNDER THE SKIN EVERY 28 DAYS. (67.5 MG= 0.45 ML)?
     Route: 058
     Dates: start: 20221026

REACTIONS (1)
  - Hospitalisation [None]
